FAERS Safety Report 5298094-7 (Version None)
Quarter: 2007Q2

REPORT INFORMATION
  Report Type: 
  Country: None (occurrence: None)
  Receive Date: 20070416
  Receipt Date: 20070402
  Transmission Date: 20071010
  Serious: Yes (Disabling)
  Sender: FDA-Public Use
  Company Number: AU-PURDUE-USA_2007_0026954

PATIENT
  Age: 56 Year
  Sex: Male

DRUGS (3)
  1. MS CONTIN [Suspect]
     Indication: DRUG USE FOR UNKNOWN INDICATION
     Dosage: 20 MG, UNK
     Route: 048
  2. SUTENT [Suspect]
     Indication: DRUG USE FOR UNKNOWN INDICATION
     Dosage: 50 MG, UNK
     Route: 048
  3. DILANTIN [Suspect]
     Indication: DRUG USE FOR UNKNOWN INDICATION
     Dosage: 300 MG, UNK
     Route: 048

REACTIONS (9)
  - ANTICONVULSANT DRUG LEVEL INCREASED [None]
  - CONFUSIONAL STATE [None]
  - DIZZINESS [None]
  - GAIT DISTURBANCE [None]
  - NAUSEA [None]
  - NEUTROPENIA [None]
  - SOMNOLENCE [None]
  - THERAPEUTIC AGENT TOXICITY [None]
  - THROMBOCYTOPENIA [None]
